FAERS Safety Report 25539700 (Version 1)
Quarter: 2025Q3

REPORT INFORMATION
  Report Type: Spontaneous
  Country: US (occurrence: None)
  Receive Date: 20250710
  Receipt Date: 20250710
  Transmission Date: 20251021
  Serious: Yes (Hospitalization)
  Sender: FDA-CTU
  Company Number: None

PATIENT
  Age: 74 Year
  Sex: Female
  Weight: 51.75 kg

DRUGS (5)
  1. EZETIMIBE [Suspect]
     Active Substance: EZETIMIBE
     Indication: Blood cholesterol
     Dosage: OTHER QUANTITY : 90 TABLET(S);?FREQUENCY : DAILY;?
     Route: 048
     Dates: start: 20250326, end: 20250422
  2. LISINOPRIL [Concomitant]
     Active Substance: LISINOPRIL
  3. CALCIUM CITRATE [Concomitant]
     Active Substance: CALCIUM CITRATE
  4. DOCUSATE SODIUM [Concomitant]
     Active Substance: DOCUSATE SODIUM
  5. COLLAGEN PEPTIDES [Concomitant]

REACTIONS (6)
  - Oropharyngeal pain [None]
  - Therapy interrupted [None]
  - Intestinal obstruction [None]
  - Volvulus [None]
  - Hysterectomy [None]
  - Postoperative adhesion [None]

NARRATIVE: CASE EVENT DATE: 20250423
